FAERS Safety Report 21704711 (Version 4)
Quarter: 2023Q4

REPORT INFORMATION
  Report Type: Report from Study
  Country: US (occurrence: US)
  Receive Date: 20221209
  Receipt Date: 20231204
  Transmission Date: 20240110
  Serious: Yes (Other)
  Sender: FDA-Public Use
  Company Number: US-TAKEDA-2022TUS073112

PATIENT
  Sex: Female

DRUGS (1)
  1. HUMAN IMMUNOGLOBULIN G [Suspect]
     Active Substance: HUMAN IMMUNOGLOBULIN G
     Indication: Primary immunodeficiency syndrome
     Dosage: UNK
     Route: 042

REACTIONS (11)
  - Spinal cord disorder [Unknown]
  - Asthenia [Unknown]
  - Migraine [Unknown]
  - Nausea [Unknown]
  - COVID-19 [Unknown]
  - Lymphocyte count decreased [Unknown]
  - Rash macular [Unknown]
  - Skin laceration [Unknown]
  - Infection [Unknown]
  - Malaise [Unknown]
  - Contusion [Unknown]
